FAERS Safety Report 4936395-X (Version None)
Quarter: 2006Q1

REPORT INFORMATION
  Report Type: 
  Country: None (occurrence: None)
  Receive Date: 20060302
  Receipt Date: 20060213
  Transmission Date: 20060701
  Serious: Yes (Other)
  Sender: FDA-Public Use
  Company Number: US200602002820

PATIENT
  Age: 58 Year
  Sex: Female

DRUGS (4)
  1. FORTEO [Suspect]
     Indication: OSTEOPOROSIS
     Dates: start: 20040301
  2. FORTEO [Concomitant]
  3. PREDNISONE TAB [Concomitant]
  4. DILANTIN [Concomitant]

REACTIONS (6)
  - ASTHMA [None]
  - HAND FRACTURE [None]
  - INTERVERTEBRAL DISC PROTRUSION [None]
  - JOINT INJURY [None]
  - PHARMACEUTICAL PRODUCT COMPLAINT [None]
  - WRIST FRACTURE [None]
